FAERS Safety Report 6879835-1 (Version None)
Quarter: 2010Q3

REPORT INFORMATION
  Report Type: 
  Country: None (occurrence: None)
  Receive Date: 20100728
  Receipt Date: 20100714
  Transmission Date: 20110219
  Serious: Yes (Other)
  Sender: FDA-Public Use
  Company Number: ZA-SANOFI-AVENTIS-2010SA033385

PATIENT
  Sex: Female

DRUGS (3)
  1. KETEK [Suspect]
     Dates: start: 20100201, end: 20100205
  2. AVELON [Suspect]
     Indication: BRONCHITIS
     Dates: start: 20100125, end: 20100129
  3. SINUCLEAR [Concomitant]
     Dates: start: 20100125, end: 20100129

REACTIONS (1)
  - DEAFNESS NEUROSENSORY [None]
